FAERS Safety Report 9826440 (Version 1)
Quarter: 2014Q1

REPORT INFORMATION
  Report Type: Spontaneous
  Country: US (occurrence: US)
  Receive Date: 20140117
  Receipt Date: 20140117
  Transmission Date: 20141002
  Serious: No
  Sender: FDA-Public Use
  Company Number: US-BIOGENIDEC-2014BI002302

PATIENT
  Sex: Female

DRUGS (12)
  1. TECFIDERA [Suspect]
     Indication: PRODUCT USED FOR UNKNOWN INDICATION
     Route: 048
     Dates: start: 201308
  2. DETROL LA [Concomitant]
  3. AMLODIPINE BESYLATE [Concomitant]
  4. PATANOL [Concomitant]
  5. NASONEX [Concomitant]
  6. AMOXICILLIN [Concomitant]
  7. HYDROCODONE BT-IBUPROFEN [Concomitant]
  8. LISINOPRIL-HCTZ [Concomitant]
  9. LEVOTHYROXINE [Concomitant]
  10. PROVIGIL [Concomitant]
  11. ALL DAY CALCIUM [Concomitant]
  12. VITAMIN D2 [Concomitant]

REACTIONS (1)
  - Tremor [Unknown]
